FAERS Safety Report 21872995 (Version 9)
Quarter: 2023Q1

REPORT INFORMATION
  Report Type: Report from Study
  Country: IL (occurrence: None)
  Receive Date: 20230117
  Receipt Date: 20230328
  Transmission Date: 20230418
  Serious: Yes (Hospitalization)
  Sender: FDA-Public Use
  Company Number: IL-Eisai Medical Research-EC-2023-131945

PATIENT
  Age: 76 Year
  Sex: Male
  Weight: 68.2 kg

DRUGS (11)
  1. LENVATINIB [Suspect]
     Active Substance: LENVATINIB
     Indication: Renal cell carcinoma
     Dosage: FLUCTUATED DOSAGE, STARTING AT 20 MG
     Route: 048
     Dates: start: 20220425
  2. QUAVONLIMAB [Suspect]
     Active Substance: QUAVONLIMAB
     Indication: Renal cell carcinoma
     Dosage: MK-1308A (25 MG MK-1308 AND 400 MG MK-3475)
     Route: 042
     Dates: start: 20220425, end: 20221121
  3. JARDIANCE [Concomitant]
     Active Substance: EMPAGLIFLOZIN
     Dates: start: 201701
  4. INSULIN DEGLUDEC [Concomitant]
     Active Substance: INSULIN DEGLUDEC
     Route: 058
     Dates: start: 20220101
  5. LORAZEPAM [Concomitant]
     Active Substance: LORAZEPAM
     Dates: start: 202202
  6. LIPITOR [Concomitant]
     Active Substance: ATORVASTATIN CALCIUM
     Dates: start: 201901
  7. METAMIZOLE [Concomitant]
     Active Substance: METAMIZOLE
     Dates: start: 20220503
  8. METAMIZOLE [Concomitant]
     Active Substance: METAMIZOLE
     Dates: start: 20221208
  9. RAMIPRIL [Concomitant]
     Active Substance: RAMIPRIL
     Dates: start: 20220801
  10. BROTIZOLAM [Concomitant]
     Active Substance: BROTIZOLAM
     Dates: start: 20221031
  11. PEMBROLIZUMAB [Suspect]
     Active Substance: PEMBROLIZUMAB
     Dates: start: 20220425

REACTIONS (1)
  - Hypophysitis [Not Recovered/Not Resolved]

NARRATIVE: CASE EVENT DATE: 20221228
